FAERS Safety Report 8443224-9 (Version None)
Quarter: 2012Q2

REPORT INFORMATION
  Report Type: 
  Country: None (occurrence: None)
  Receive Date: 20120617
  Receipt Date: 20120608
  Transmission Date: 20120825
  Serious: Yes (Hospitalization)
  Sender: FDA-Public Use
  Company Number: FR-TEVA-342719ISR

PATIENT
  Sex: Female

DRUGS (1)
  1. FLURBIPROFEN [Suspect]
     Indication: DYSMENORRHOEA
     Dosage: 200 MILLIGRAM;
     Route: 048
     Dates: start: 20120510, end: 20120511

REACTIONS (1)
  - RENAL FAILURE ACUTE [None]
